FAERS Safety Report 25952775 (Version 2)
Quarter: 2025Q4

REPORT INFORMATION
  Report Type: Report from Study
  Country: PK (occurrence: PK)
  Receive Date: 20251023
  Receipt Date: 20251106
  Transmission Date: 20260119
  Serious: Yes (Death)
  Sender: ROCHE
  Company Number: PK-ROCHE-10000414342

PATIENT
  Age: 46 Year
  Sex: Male

DRUGS (2)
  1. AVASTIN [Suspect]
     Active Substance: BEVACIZUMAB
     Indication: Non-small cell lung cancer
     Route: 042
     Dates: start: 20241007
  2. TECENTRIQ [Suspect]
     Active Substance: ATEZOLIZUMAB
     Indication: Non-small cell lung cancer
     Route: 042
     Dates: start: 20241007

REACTIONS (5)
  - Metastasis [Fatal]
  - Feeding disorder [Fatal]
  - Dyspnoea [Fatal]
  - Haemoptysis [Fatal]
  - Disease progression [Fatal]

NARRATIVE: CASE EVENT DATE: 20250912
